FAERS Safety Report 13781123 (Version 1)
Quarter: 2017Q3

REPORT INFORMATION
  Report Type: Spontaneous
  Country: US (occurrence: US)
  Receive Date: 20170723
  Receipt Date: 20170723
  Transmission Date: 20171127
  Serious: Yes (Life-Threatening, Hospitalization, Disabling, Other)
  Sender: FDA-Public Use
  Company Number: None

PATIENT
  Age: 73 Year
  Sex: Female
  Weight: 78.3 kg

DRUGS (10)
  1. DILTAZAM [Concomitant]
  2. FISH OIL [Concomitant]
     Active Substance: FISH OIL
  3. BIOTIN [Concomitant]
     Active Substance: BIOTIN
  4. ANASTROZOLE. [Concomitant]
     Active Substance: ANASTROZOLE
  5. FOSAMAX [Suspect]
     Active Substance: ALENDRONATE SODIUM
     Indication: BONE DISORDER
     Route: 048
  6. LOSARTAN. [Concomitant]
     Active Substance: LOSARTAN
  7. PRAVASTATIN. [Concomitant]
     Active Substance: PRAVASTATIN
  8. OMEPRAZOLE. [Concomitant]
     Active Substance: OMEPRAZOLE
  9. L-THYROXINE [Concomitant]
     Active Substance: LEVOTHYROXINE
  10. COQ10 [Concomitant]
     Active Substance: UBIDECARENONE

REACTIONS (3)
  - Drug ineffective [None]
  - Wrist fracture [None]
  - Femur fracture [None]

NARRATIVE: CASE EVENT DATE: 20170514
